FAERS Safety Report 10145369 (Version 1)
Quarter: 2014Q2

REPORT INFORMATION
  Report Type: Spontaneous
  Country: US (occurrence: US)
  Receive Date: 20140501
  Receipt Date: 20140501
  Transmission Date: 20141212
  Serious: No
  Sender: FDA-Public Use
  Company Number: US-BIOGENIDEC-2014BI037866

PATIENT
  Age: 49 Year
  Sex: Female
  Weight: 81 kg

DRUGS (10)
  1. TECFIDERA [Suspect]
     Indication: MULTIPLE SCLEROSIS
     Route: 048
     Dates: start: 201403
  2. TECFIDERA [Suspect]
     Indication: MULTIPLE SCLEROSIS
     Route: 048
     Dates: start: 20140318, end: 20140321
  3. OXYCONTIN [Concomitant]
     Indication: PAIN
  4. FENTANYL PATCHES [Concomitant]
     Indication: PAIN
  5. LITHIUM [Concomitant]
     Indication: PAIN
  6. RISPERIDONE [Concomitant]
     Indication: PAIN
  7. DULOXETINE [Concomitant]
     Indication: PAIN
  8. CYCLOBENAZAPINE [Concomitant]
     Indication: PAIN
  9. GABAPENTIN [Concomitant]
     Indication: PAIN
  10. TIZANIDINE [Concomitant]
     Indication: PAIN

REACTIONS (1)
  - Hallucination [Recovered/Resolved]
